FAERS Safety Report 4507355-8 (Version None)
Quarter: 2004Q4

REPORT INFORMATION
  Report Type: 
  Country: None (occurrence: None)
  Receive Date: 20041118
  Receipt Date: 20041108
  Transmission Date: 20050328
  Serious: Yes (Other)
  Sender: FDA-Public Use
  Company Number: 200415379BCC

PATIENT
  Age: 69 Year
  Sex: Female
  Weight: 88.905 kg

DRUGS (3)
  1. ALEVE [Suspect]
     Indication: HEADACHE
     Dosage: SEE IMAGE
     Route: 048
     Dates: start: 20041107
  2. ALEVE [Suspect]
     Indication: NASOPHARYNGITIS
     Dosage: SEE IMAGE
     Route: 048
     Dates: start: 20041107
  3. ALEVE [Suspect]
     Indication: NECK PAIN
     Dosage: SEE IMAGE
     Route: 048
     Dates: start: 20041107

REACTIONS (2)
  - BLOOD PRESSURE INCREASED [None]
  - DYSPNOEA [None]
